FAERS Safety Report 5899663-3 (Version None)
Quarter: 2008Q3

REPORT INFORMATION
  Report Type: 
  Country: None (occurrence: None)
  Receive Date: 20080926
  Receipt Date: 20080922
  Transmission Date: 20090109
  Serious: Yes (Hospitalization, Other)
  Sender: FDA-Public Use
  Company Number: US-TEVA-177878USA

PATIENT
  Age: 8 Year
  Sex: Male

DRUGS (3)
  1. METHYLPREDNISOLONE SODIUM SUCCINATE FOR INJECTION, USP 125 MG BASE/VIA [Suspect]
     Route: 042
  2. METHYLPREDNISOLONE SODIUM SUCCINATE FOR INJECTION, USP 125 MG BASE/VIA [Suspect]
  3. PREDNISONE [Suspect]
     Indication: SARCOIDOSIS

REACTIONS (1)
  - VASCULAR OCCLUSION [None]
